FAERS Safety Report 9170923 (Version 2)
Quarter: 2013Q2

REPORT INFORMATION
  Report Type: Spontaneous
  Country: FR (occurrence: None)
  Receive Date: 20130312
  Receipt Date: 20130614
  Transmission Date: 20140414
  Serious: Yes (Hospitalization)
  Sender: FDA-Public Use
  Company Number: 2013-000660

PATIENT
  Age: 82 Year
  Sex: Female

DRUGS (7)
  1. ACTONEL (RISEDRONATE SODIUM) TABLET, 35MG [Suspect]
     Route: 048
  2. KARDEGIC [Suspect]
     Route: 048
     Dates: end: 20130113
  3. DICLOFENAC (DICLOFENAC) [Suspect]
     Dosage: 1 DF, DAILY, ORAL
     Route: 048
     Dates: end: 20130131
  4. AVLOCARDYL [Suspect]
     Route: 048
  5. DAFALGAN [Suspect]
     Route: 048
  6. METEOXANE [Suspect]
     Route: 048
  7. OROCAL D3 [Suspect]
     Route: 048

REACTIONS (1)
  - Colitis microscopic [None]
